FAERS Safety Report 18144617 (Version 2)
Quarter: 2020Q4

REPORT INFORMATION
  Report Type: Spontaneous
  Country: CH (occurrence: CH)
  Receive Date: 20200813
  Receipt Date: 20201009
  Transmission Date: 20210113
  Serious: Yes (Death)
  Sender: FDA-Public Use
  Company Number: NVSC2020CH222543

PATIENT
  Age: 45 Year
  Sex: Female

DRUGS (3)
  1. KYMRIAH [Suspect]
     Active Substance: TISAGENLECLEUCEL
     Indication: DIFFUSE LARGE B-CELL LYMPHOMA RECURRENT
     Dosage: UNK (0.5X 10E8 CAR-POSITIVE VIABLE T-CELLS, 7.6% POSITIVE VIABLE CELLS) (OUT OF SPECIFICATION PROCED
     Route: 042
     Dates: start: 201901
  2. FLUDARABINE [Concomitant]
     Active Substance: FLUDARABINE PHOSPHATE
     Indication: DIFFUSE LARGE B-CELL LYMPHOMA RECURRENT
     Dosage: 30 MG/M2 (3 DAYS)
     Route: 065
  3. CYCLOPHOSPHAMIDE. [Concomitant]
     Active Substance: CYCLOPHOSPHAMIDE
     Indication: DIFFUSE LARGE B-CELL LYMPHOMA RECURRENT
     Dosage: 300 MG/M2 (FOR 3 DAYS)
     Route: 065

REACTIONS (3)
  - Malignant neoplasm progression [Fatal]
  - Out of specification test results [Unknown]
  - Diffuse large B-cell lymphoma recurrent [Fatal]
